FAERS Safety Report 11056150 (Version 1)
Quarter: 2015Q2

REPORT INFORMATION
  Report Type: Report from Study
  Country: GB (occurrence: GB)
  Receive Date: 20150422
  Receipt Date: 20150422
  Transmission Date: 20150821
  Serious: Yes (Other)
  Sender: FDA-Public Use
  Company Number: GB-PFIZER INC-2015132707

PATIENT
  Age: 28 Year
  Sex: Male

DRUGS (1)
  1. EPANUTIN [Suspect]
     Active Substance: PHENYTOIN SODIUM
     Indication: EPILEPSY
     Dosage: UNK
     Route: 048
     Dates: start: 19390131

REACTIONS (4)
  - Rash morbilliform [Recovered/Resolved]
  - Stupor [Recovered/Resolved]
  - Leukopenia [Recovered/Resolved]
  - Lymphocytosis [Recovered/Resolved]
